FAERS Safety Report 5320450-9 (Version None)
Quarter: 2007Q2

REPORT INFORMATION
  Report Type: 
  Country: None (occurrence: None)
  Receive Date: 20070509
  Receipt Date: 20070502
  Transmission Date: 20071010
  Serious: Yes (Life-Threatening)
  Sender: FDA-Public Use
  Company Number: ES-ROCHE-482673

PATIENT
  Age: 61 Year
  Sex: Male
  Weight: 68 kg

DRUGS (7)
  1. MYCOPHENOLATE MOFETIL [Suspect]
     Route: 048
     Dates: start: 20061104, end: 20070123
  2. TACROLIMUS [Suspect]
     Route: 048
     Dates: start: 20061104, end: 20070123
  3. TACROLIMUS [Suspect]
     Route: 048
  4. IBUPROFEN [Concomitant]
  5. SEPTRIN [Concomitant]
     Dates: start: 20061120
  6. OMEPRAZOLE [Concomitant]
     Dates: start: 20061104
  7. VALCYTE [Concomitant]
     Dates: start: 20070104

REACTIONS (1)
  - GUILLAIN-BARRE SYNDROME [None]
